FAERS Safety Report 6347627-8 (Version None)
Quarter: 2009Q3

REPORT INFORMATION
  Report Type: 
  Country: None (occurrence: None)
  Receive Date: 20090910
  Receipt Date: 20090907
  Transmission Date: 20100115
  Serious: Yes (Other)
  Sender: FDA-Public Use
  Company Number: AT-BAYER-200931333GPV

PATIENT
  Age: 39 Year
  Sex: Male

DRUGS (3)
  1. BETAFERON [Suspect]
     Indication: MULTIPLE SCLEROSIS
     Route: 058
     Dates: start: 19960929, end: 20090326
  2. VOLTAREN [Concomitant]
     Indication: BACK PAIN
     Dosage: LOW DOSE - REAL DOSE IS UNKNOWN
     Dates: start: 20090101
  3. CORTISON [Concomitant]
     Indication: MULTIPLE SCLEROSIS RELAPSE
     Dosage: DOSE UNKNOWN
     Dates: start: 20090224, end: 20090302

REACTIONS (2)
  - LIVER DISORDER [None]
  - TRANSAMINASES INCREASED [None]
